FAERS Safety Report 15018783 (Version 1)
Quarter: 2018Q2

REPORT INFORMATION
  Report Type: Spontaneous
  Country: US (occurrence: US)
  Receive Date: 20180616
  Receipt Date: 20180616
  Transmission Date: 20180711
  Serious: Yes (Hospitalization)
  Sender: FDA-Public Use
  Company Number: US-AUROBINDO-AUR-APL-2018-031329

PATIENT
  Age: 58 Year
  Sex: Male

DRUGS (10)
  1. OXYCODONE [Suspect]
     Active Substance: OXYCODONE
     Indication: BREAKTHROUGH PAIN
     Dosage: 80 MILLIGRAM, EVERY 4-6 HOURS DAILY
     Route: 048
  2. HYDROMORPHONE [Concomitant]
     Active Substance: HYDROMORPHONE
     Indication: PRODUCT USED FOR UNKNOWN INDICATION
     Dosage: UNK
     Route: 037
  3. METHADONE [Suspect]
     Active Substance: METHADONE HYDROCHLORIDE
     Dosage: 10 MILLIGRAM, 2 TIMES A DAY
     Route: 065
  4. OXYCODONE [Suspect]
     Active Substance: OXYCODONE
     Dosage: 10-20 MG EVERY 4 HOURS
     Route: 065
  5. GABAPENTIN. [Concomitant]
     Active Substance: GABAPENTIN
     Indication: NEURALGIA
     Dosage: 2400 MILLIGRAM, DAILY (DIVIDED 3 TIMES PER DAY)
     Route: 048
  6. OXYCODONE [Suspect]
     Active Substance: OXYCODONE
     Dosage: REDUCED BY 25 %
     Route: 065
  7. METHADONE [Suspect]
     Active Substance: METHADONE HYDROCHLORIDE
     Indication: NEURALGIA
     Dosage: 40 MILLIGRAM, 4 TIMES DAILY
     Route: 048
  8. PREGABALIN. [Concomitant]
     Active Substance: PREGABALIN
     Indication: NEURALGIA
     Dosage: 150 MILLIGRAM, TWO TIMES A DAY
     Route: 065
  9. DULOXETINE. [Concomitant]
     Active Substance: DULOXETINE
     Indication: NEURALGIA
     Dosage: 60 MILLIGRAM, DAILY
     Route: 065
  10. METHADONE [Suspect]
     Active Substance: METHADONE HYDROCHLORIDE
     Dosage: 5 MILLIGRAM, 2 TIMES DAILY
     Route: 065

REACTIONS (1)
  - Cognitive disorder [Recovering/Resolving]
